FAERS Safety Report 8357568-2 (Version None)
Quarter: 2012Q2

REPORT INFORMATION
  Report Type: 
  Country: None (occurrence: None)
  Receive Date: 20120514
  Receipt Date: 20110707
  Transmission Date: 20120825
  Serious: No
  Sender: FDA-Public Use
  Company Number: US-TEVA-2011003623

PATIENT
  Sex: Female
  Weight: 59.02 kg

DRUGS (5)
  1. NUVIGIL [Suspect]
     Route: 048
  2. FLUOXETINE [Concomitant]
     Dates: start: 20110101
  3. IMIPRAMINE [Concomitant]
     Dates: start: 20090101
  4. NUVIGIL [Suspect]
     Indication: DEPRESSION
     Dosage: 125 MILLIGRAM;
     Route: 048
     Dates: start: 20110501
  5. NUVIGIL [Suspect]
     Dosage: 75 MILLIGRAM;
     Route: 048
     Dates: start: 20110701

REACTIONS (2)
  - NASOPHARYNGITIS [None]
  - INITIAL INSOMNIA [None]
